FAERS Safety Report 8717661 (Version 3)
Quarter: 2013Q1

REPORT INFORMATION
  Report Type: Spontaneous
  Country: FR (occurrence: FR)
  Receive Date: 20120726
  Receipt Date: 20130213
  Transmission Date: 20140127
  Serious: Yes (Death, Hospitalization)
  Sender: FDA-Public Use
  Company Number: 2012SP000870

PATIENT
  Age: 15 Year
  Sex: Female

DRUGS (11)
  1. VANCOMYCIN [Suspect]
     Indication: BRONCHOPULMONARY ASPERGILLOSIS
     Route: 042
     Dates: start: 20120522
  2. CIPROFLOXACIN [Suspect]
     Indication: PRODUCT USED FOR UNKNOWN INDICATION
     Dates: start: 20120528, end: 20120604
  3. TICARCILLIN DISODIUM/CLAVULANATE POTASSIUM [Suspect]
     Indication: BRONCHOPULMONARY ASPERGILLOSIS
     Route: 042
     Dates: start: 20120528, end: 20120601
  4. CO-TRIMOXAZOLE [Suspect]
     Indication: PROPHYLAXIS
     Route: 042
     Dates: start: 20120428
  5. CANCIDAS [Suspect]
     Indication: BRONCHOPULMONARY ASPERGILLOSIS
     Route: 042
     Dates: start: 20120528, end: 20120530
  6. VORICONAZOLE [Interacting]
     Indication: BRONCHOPULMONARY ASPERGILLOSIS
     Route: 042
     Dates: start: 20120514, end: 20120531
  7. GENTAMICIN [Interacting]
     Indication: BRONCHOPULMONARY ASPERGILLOSIS
     Route: 042
     Dates: start: 20120526, end: 20120530
  8. CYCLOSPORIN [Interacting]
     Indication: APLASIA
     Route: 048
     Dates: start: 20120423, end: 20120531
  9. FILGRASTIM [Concomitant]
  10. ATGAM [Concomitant]
  11. COLISTIN [Concomitant]

REACTIONS (5)
  - Renal failure acute [Fatal]
  - Drug interaction [Fatal]
  - Drug hypersensitivity [None]
  - Overdose [None]
  - Respiratory distress [None]
